FAERS Safety Report 15316034 (Version 1)
Quarter: 2018Q3

REPORT INFORMATION
  Report Type: Report from Study
  Country: None (occurrence: US)
  Receive Date: 20180824
  Receipt Date: 20180824
  Transmission Date: 20181010
  Serious: Yes (Disabling)
  Sender: FDA-Public Use
  Company Number: US-BAUSCH-BL-2018-023500

PATIENT
  Age: 66 Year
  Sex: Male

DRUGS (1)
  1. XIFAXAN [Suspect]
     Active Substance: RIFAXIMIN
     Indication: LIVER DISORDER
     Route: 048
     Dates: start: 201806

REACTIONS (8)
  - Asthenia [Not Recovered/Not Resolved]
  - Physical disability [Unknown]
  - Fatigue [Not Recovered/Not Resolved]
  - Confusional state [Not Recovered/Not Resolved]
  - Blood sodium decreased [Unknown]
  - Drug ineffective [Not Recovered/Not Resolved]
  - Aphonia [Unknown]
  - Malaise [Unknown]

NARRATIVE: CASE EVENT DATE: 2018
